FAERS Safety Report 5194395-1 (Version None)
Quarter: 2006Q4

REPORT INFORMATION
  Report Type: 
  Country: None (occurrence: None)
  Receive Date: 20061228
  Receipt Date: 20061219
  Transmission Date: 20070319
  Serious: Yes (Other)
  Sender: FDA-Public Use
  Company Number: BR-PFIZER INC-2006155133

PATIENT
  Age: 6 Year
  Sex: Female

DRUGS (1)
  1. ALDACTONE [Suspect]
     Route: 048

REACTIONS (2)
  - BLOOD BILIRUBIN UNCONJUGATED INCREASED [None]
  - JAUNDICE [None]
